FAERS Safety Report 15479175 (Version 1)
Quarter: 2018Q4

REPORT INFORMATION
  Report Type: Spontaneous
  Country: US (occurrence: US)
  Receive Date: 20181003
  Receipt Date: 20181003
  Transmission Date: 20190205
  Serious: Yes (Life-Threatening)
  Sender: FDA-Public Use
  Company Number: None

PATIENT
  Age: 74 Year
  Weight: 69.85 kg

DRUGS (1)
  1. VALSARTAN  TABS 160MG [Suspect]
     Active Substance: VALSARTAN
     Indication: HYPERTENSION
     Route: 048
     Dates: start: 2013, end: 2018

REACTIONS (2)
  - Renal cancer [None]
  - Ureteric cancer [None]

NARRATIVE: CASE EVENT DATE: 20180707
